FAERS Safety Report 11250400 (Version 1)
Quarter: 2015Q3

REPORT INFORMATION
  Report Type: Spontaneous
  Country: US (occurrence: US)
  Receive Date: 20150708
  Receipt Date: 20150708
  Transmission Date: 20151125
  Serious: No
  Sender: FDA-Public Use
  Company Number: US-ELI_LILLY_AND_COMPANY-US201004002111

PATIENT
  Sex: Male

DRUGS (2)
  1. XIGRIS [Suspect]
     Active Substance: DROTRECOGIN ALFA (ACTIVATED)
  2. XIGRIS [Suspect]
     Active Substance: DROTRECOGIN ALFA (ACTIVATED)

REACTIONS (2)
  - Medication error [Unknown]
  - Accidental overdose [Unknown]

NARRATIVE: CASE EVENT DATE: 2010
